FAERS Safety Report 6931926-2 (Version None)
Quarter: 2010Q3

REPORT INFORMATION
  Report Type: 
  Country: None (occurrence: None)
  Receive Date: 20100819
  Receipt Date: 20100805
  Transmission Date: 20110219
  Serious: Yes (Hospitalization)
  Sender: FDA-Public Use
  Company Number: DE-SANOFI-AVENTIS-2010SA046438

PATIENT
  Age: 71 Year
  Sex: Male
  Weight: 70 kg

DRUGS (9)
  1. MULTAQ [Suspect]
     Route: 048
     Dates: start: 20100401
  2. LANTUS [Concomitant]
     Indication: DIABETES MELLITUS
     Dosage: DOSAGE: 0-0-0-20 IU
     Route: 058
  3. ACETYLSALICYLIC ACID SRT [Concomitant]
     Route: 048
  4. AMLODIPINE [Concomitant]
     Route: 048
  5. BISOPROLOL [Concomitant]
     Route: 048
  6. MTX [Concomitant]
     Route: 048
  7. PANTOPRAZOLE [Concomitant]
     Route: 048
  8. GLIMEPIRIDE [Concomitant]
     Route: 048
  9. TORSEMIDE [Concomitant]
     Route: 048

REACTIONS (5)
  - COAGULOPATHY [None]
  - GINGIVAL BLEEDING [None]
  - HAEMATOMA [None]
  - MELAENA [None]
  - PROTHROMBIN TIME PROLONGED [None]
